FAERS Safety Report 9486716 (Version 1)
Quarter: 2013Q3

REPORT INFORMATION
  Report Type: Spontaneous
  Country: US (occurrence: US)
  Receive Date: 20130829
  Receipt Date: 20130829
  Transmission Date: 20140515
  Serious: No
  Sender: FDA-Public Use
  Company Number: US-ASTRAZENECA-2013SE62019

PATIENT
  Age: 53 Year
  Sex: Female
  Weight: 74.8 kg

DRUGS (2)
  1. NEXIUM [Suspect]
     Route: 048
     Dates: start: 2012
  2. NEXIUM [Suspect]
     Route: 048
     Dates: start: 2013

REACTIONS (2)
  - Gastrooesophageal reflux disease [Unknown]
  - Intentional drug misuse [Unknown]
